APPROVED DRUG PRODUCT: DEPACON
Active Ingredient: VALPROATE SODIUM
Strength: EQ 100MG BASE/ML **Federal Register determination that product was not discontinued or withdrawn for safety or effectiveness reasons**
Dosage Form/Route: INJECTABLE;INJECTION
Application: N020593 | Product #001
Applicant: ABBVIE INC
Approved: Dec 30, 1996 | RLD: Yes | RS: No | Type: DISCN